FAERS Safety Report 10428375 (Version 9)
Quarter: 2015Q4

REPORT INFORMATION
  Report Type: Spontaneous
  Country: US (occurrence: US)
  Receive Date: 20140903
  Receipt Date: 20151001
  Transmission Date: 20160304
  Serious: Yes (Hospitalization, Other)
  Sender: FDA-Public Use
  Company Number: US-GLAXOSMITHKLINE-A1082219A

PATIENT
  Age: 41 Year
  Sex: Female

DRUGS (9)
  1. FLOLAN [Suspect]
     Active Substance: EPOPROSTENOL SODIUM
     Indication: PULMONARY ARTERIAL HYPERTENSION
     Dosage: 4 NG/KG/MIN (CONCENTRATION 10,000 NG/ML; PUMP RATE 50 MG/DAY; VIAL STRENGTH 0.5)6 NG/KG/MIN (CO[...]
     Route: 042
     Dates: start: 20140227
  2. OPSUMIT [Suspect]
     Active Substance: MACITENTAN
     Indication: PRODUCT USED FOR UNKNOWN INDICATION
  3. FLOLAN [Suspect]
     Active Substance: EPOPROSTENOL SODIUM
     Dosage: UNK
     Dates: start: 20140227
  4. FLOLAN [Suspect]
     Active Substance: EPOPROSTENOL SODIUM
     Dosage: 8 DF, UNK
     Dates: start: 20140227
  5. FLOLAN [Suspect]
     Active Substance: EPOPROSTENOL SODIUM
     Dosage: UNK
  6. REVATIO [Concomitant]
     Active Substance: SILDENAFIL CITRATE
  7. VELETRI [Concomitant]
     Active Substance: EPOPROSTENOL
  8. FLOLAN [Suspect]
     Active Substance: EPOPROSTENOL SODIUM
     Dosage: 16.3 DF, CO
     Dates: start: 20140613, end: 20150715
  9. COUMADIN [Concomitant]
     Active Substance: WARFARIN SODIUM

REACTIONS (31)
  - Skin haemorrhage [Unknown]
  - Catheter site swelling [Unknown]
  - Hypotension [Unknown]
  - Nasopharyngitis [Unknown]
  - Pain in jaw [Unknown]
  - Activities of daily living impaired [Recovering/Resolving]
  - Nausea [Unknown]
  - Pulmonary hypertension [Not Recovered/Not Resolved]
  - Fluid retention [Unknown]
  - Catheter site pain [Not Recovered/Not Resolved]
  - Rash papular [Unknown]
  - Catheter site discharge [Unknown]
  - Cough [Unknown]
  - Laceration [Unknown]
  - Application site irritation [Unknown]
  - Hospitalisation [Unknown]
  - Erythema [Unknown]
  - Dyspnoea [Unknown]
  - Pulmonary arterial hypertension [Unknown]
  - Vomiting [Unknown]
  - Adverse event [Unknown]
  - Oedema [Unknown]
  - Catheter site erythema [Not Recovered/Not Resolved]
  - Pruritus [Unknown]
  - Skin disorder [Unknown]
  - Pyrexia [Unknown]
  - Headache [Unknown]
  - Ascites [Unknown]
  - Catheter site pruritus [Not Recovered/Not Resolved]
  - Catheter site inflammation [Not Recovered/Not Resolved]
  - Malaise [Unknown]

NARRATIVE: CASE EVENT DATE: 2014
